FAERS Safety Report 7731080-3 (Version None)
Quarter: 2011Q3

REPORT INFORMATION
  Report Type: 
  Country: None (occurrence: None)
  Receive Date: 20110906
  Receipt Date: 20110906
  Transmission Date: 20111222
  Serious: Yes (Other)
  Sender: FDA-Public Use
  Company Number: None

PATIENT
  Age: 56 Year
  Sex: Female
  Weight: 68.038 kg

DRUGS (1)
  1. ANY PRODUCT W PROPYLENE GLYCOL [Suspect]
     Dosage: IF 1 OF TOP 3 INGREDIENTS
     Dates: start: 20070310, end: 20070324

REACTIONS (6)
  - PRODUCT FORMULATION ISSUE [None]
  - DYSURIA [None]
  - MUSCLE TWITCHING [None]
  - PROCTALGIA [None]
  - BURNING SENSATION [None]
  - HAEMORRHAGE [None]
